FAERS Safety Report 4747158-2 (Version None)
Quarter: 2005Q3

REPORT INFORMATION
  Report Type: 
  Country: None (occurrence: None)
  Receive Date: 20050815
  Receipt Date: 20050124
  Transmission Date: 20060218
  Serious: Yes (Other)
  Sender: FDA-Public Use
  Company Number: MEDI-0002831

PATIENT
  Age: 1 Month
  Sex: Female
  Weight: 2.7216 kg

DRUGS (3)
  1. SYNAGIS [Suspect]
     Indication: ANTIVIRAL PROPHYLAXIS
     Dosage: 50 MG, 1 IN 30 D, INTRAMUSCULAR;  1 IN 30 D, INTRAMUSCULAR;  1 IN 30 D, INTRAMUSCULAR
     Route: 030
     Dates: start: 20041101, end: 20041230
  2. SYNAGIS [Suspect]
     Indication: ANTIVIRAL PROPHYLAXIS
     Dosage: 50 MG, 1 IN 30 D, INTRAMUSCULAR;  1 IN 30 D, INTRAMUSCULAR;  1 IN 30 D, INTRAMUSCULAR
     Route: 030
     Dates: start: 20041101
  3. SYNAGIS [Suspect]
     Indication: ANTIVIRAL PROPHYLAXIS
     Dosage: 50 MG, 1 IN 30 D, INTRAMUSCULAR;  1 IN 30 D, INTRAMUSCULAR;  1 IN 30 D, INTRAMUSCULAR
     Route: 030
     Dates: start: 20050127

REACTIONS (2)
  - ANGIONEUROTIC OEDEMA [None]
  - FACE OEDEMA [None]
